FAERS Safety Report 5305716-0 (Version None)
Quarter: 2007Q2

REPORT INFORMATION
  Report Type: 
  Country: None (occurrence: None)
  Receive Date: 20070416
  Receipt Date: 20070404
  Transmission Date: 20071010
  Serious: Yes (Disabling)
  Sender: FDA-Public Use
  Company Number: 2007-155499-NL

PATIENT
  Age: 4 Month
  Sex: Male

DRUGS (9)
  1. VECURONIUM BROMIDE [Suspect]
     Indication: HYPOTONIA
     Dosage: 0.5 MG BID
     Dates: start: 20070221, end: 20070221
  2. SPIRONOLACTONE [Concomitant]
  3. FUROSEMIDE [Concomitant]
  4. MENATETRENONE [Concomitant]
  5. FAMOTIDINE [Concomitant]
  6. INCREMIN [Concomitant]
  7. CLARITHROMYCIN [Concomitant]
  8. POTASSIUM GLUCONATE TAB [Concomitant]
  9. ENTOMOL [Concomitant]

REACTIONS (7)
  - BRAIN OEDEMA [None]
  - CEREBRAL ATROPHY [None]
  - OXYGEN SATURATION DECREASED [None]
  - PYREXIA [None]
  - RHABDOMYOLYSIS [None]
  - SOMNOLENCE [None]
  - URINE OUTPUT DECREASED [None]
